FAERS Safety Report 17428306 (Version 1)
Quarter: 2020Q1

REPORT INFORMATION
  Report Type: Spontaneous
  Country: US (occurrence: US)
  Receive Date: 20200214
  Receipt Date: 20200214
  Transmission Date: 20200409
  Serious: No
  Sender: FDA-Public Use
  Company Number: None

PATIENT
  Sex: Male
  Weight: 80.29 kg

DRUGS (2)
  1. REMICADE [Concomitant]
     Active Substance: INFLIXIMAB
     Dates: start: 20200214, end: 20200214
  2. REMICADE [Suspect]
     Active Substance: INFLIXIMAB

REACTIONS (2)
  - Pruritus [None]
  - Dyspnoea [None]
